FAERS Safety Report 6384683-5 (Version None)
Quarter: 2009Q3

REPORT INFORMATION
  Report Type: 
  Country: None (occurrence: None)
  Receive Date: 20090924
  Receipt Date: 20090316
  Transmission Date: 20100115
  Serious: No
  Sender: FDA-Public Use
  Company Number: US-CVT-090116

PATIENT
  Age: 54 Year
  Sex: Female

DRUGS (6)
  1. RANEXA [Suspect]
     Indication: ARRHYTHMIA
     Dosage: 500 MG, BID, ORAL
     Route: 048
     Dates: start: 20090227
  2. RANEXA [Suspect]
     Indication: OFF LABEL USE
     Dosage: 500 MG, BID, ORAL
     Route: 048
     Dates: start: 20090227
  3. THYROID THERAPY [Concomitant]
  4. PREMARIN [Concomitant]
  5. OS-CAL (CALCIUM, ERGOCALCIFEROL) [Concomitant]
  6. MAGNESIUM OXIDE (MAGNESIUM OXIDE) [Concomitant]

REACTIONS (4)
  - HYPOAESTHESIA [None]
  - HYPOAESTHESIA FACIAL [None]
  - OFF LABEL USE [None]
  - URINE COLOUR ABNORMAL [None]
